FAERS Safety Report 7488409-3 (Version None)
Quarter: 2011Q2

REPORT INFORMATION
  Report Type: 
  Country: None (occurrence: None)
  Receive Date: 20110511
  Receipt Date: 20110427
  Transmission Date: 20111010
  Serious: Yes (Other)
  Sender: FDA-Public Use
  Company Number: 20110348

PATIENT
  Age: 51 Year
  Sex: Female

DRUGS (1)
  1. CYANOCOBALAMIN [Suspect]
     Indication: COELIAC DISEASE
     Dosage: 1 ML X 1 PER MONTHS INTRAMUSCULAR
     Route: 030
     Dates: start: 20090101, end: 20110422

REACTIONS (9)
  - PAIN [None]
  - GAIT DISTURBANCE [None]
  - OEDEMA PERIPHERAL [None]
  - INJECTION SITE PAIN [None]
  - SENSORY DISTURBANCE [None]
  - DRUG HYPERSENSITIVITY [None]
  - JOINT SWELLING [None]
  - MYALGIA [None]
  - VENOUS INJURY [None]
